FAERS Safety Report 8118544-8 (Version None)
Quarter: 2011Q4

REPORT INFORMATION
  Report Type: 
  Country: None (occurrence: None)
  Receive Date: 20111227
  Receipt Date: 20111014
  Transmission Date: 20120403
  Serious: No
  Sender: FDA-Public Use
  Company Number: PHEH2011US06986

PATIENT
  Age: 39 Year
  Sex: Female

DRUGS (1)
  1. GILENYA [Suspect]
     Indication: MULTIPLE SCLEROSIS
     Dosage: 0.5 MG, DAILY, ORAL
     Route: 048
     Dates: start: 20110923

REACTIONS (8)
  - CONFUSIONAL STATE [None]
  - FEELING ABNORMAL [None]
  - HEART RATE INCREASED [None]
  - DYSPNOEA [None]
  - BACK PAIN [None]
  - SENSATION OF HEAVINESS [None]
  - FLUSHING [None]
  - SWELLING FACE [None]
